FAERS Safety Report 9858859 (Version 2)
Quarter: 2014Q1

REPORT INFORMATION
  Report Type: Spontaneous
  Country: US (occurrence: None)
  Receive Date: 20140129
  Receipt Date: 20140218
  Transmission Date: 20141002
  Serious: Yes (Disabling, Other)
  Sender: FDA-Public Use
  Company Number: AUR-APL-2014-00664

PATIENT
  Sex: Female

DRUGS (1)
  1. LEVOFLOXACIN [Suspect]
     Indication: PRODUCT USED FOR UNKNOWN INDICATION

REACTIONS (8)
  - Asthenia [None]
  - Cartilage injury [None]
  - Muscle twitching [None]
  - Joint crepitation [None]
  - Pain in extremity [None]
  - Gait disturbance [None]
  - Impaired work ability [None]
  - Walking aid user [None]
